FAERS Safety Report 8152821 (Version 2)
Quarter: 2012Q4

REPORT INFORMATION
  Report Type: 
  Country: DE (occurrence: DE)
  Receive Date: 20110922
  Receipt Date: 20120905
  Transmission Date: 20130627
  Serious: Yes (Hospitalization, Congenital Anomaly)
  Sender: FDA-Public Use
  Company Number: DE-US-EMD SERONO, INC.-7083757

PATIENT
  Age: 32 None
  Sex: Female
  Weight: 1.4 kg

DRUGS (1)
  1. REBIF [Suspect]
     Indication: PRODUCT USED FOR UNKNOWN INDICATION
     Route: 064

REACTIONS (8)
  - Premature baby [Recovered/Resolved]
  - Patent ductus arteriosus [Recovering/Resolving]
  - Pulmonary valve stenosis [Recovering/Resolving]
  - Cardio-respiratory distress [Recovered/Resolved]
  - Body temperature fluctuation [Recovered/Resolved]
  - Hyperbilirubinaemia [Unknown]
  - Feeding disorder neonatal [Recovered/Resolved]
  - Foetal exposure during pregnancy [Recovered/Resolved]
